FAERS Safety Report 6215548-7 (Version None)
Quarter: 2009Q2

REPORT INFORMATION
  Report Type: 
  Country: None (occurrence: None)
  Receive Date: 20090605
  Receipt Date: 20090529
  Transmission Date: 20091009
  Serious: Yes (Disabling)
  Sender: FDA-Public Use
  Company Number: JP-SP-2009-01500

PATIENT
  Age: 71 Year
  Sex: Male

DRUGS (2)
  1. IMMUCYST [Suspect]
     Indication: BLADDER CANCER
     Dosage: 81 MG 12 TIMES; 40 MG 17 TIMES
     Route: 043
     Dates: start: 20080620, end: 20090316
  2. IMMUCYST [Suspect]
     Dosage: 81 MG 12 TIMES; 40 MG 17 TIMES
     Route: 043
     Dates: start: 20080620, end: 20090316

REACTIONS (4)
  - DYSURIA [None]
  - INCORRECT DOSE ADMINISTERED [None]
  - POLLAKIURIA [None]
  - URINARY BLADDER ATROPHY [None]
